FAERS Safety Report 25989560 (Version 1)
Quarter: 2025Q4

REPORT INFORMATION
  Report Type: Spontaneous
  Country: US (occurrence: None)
  Receive Date: 20251031
  Receipt Date: 20251031
  Transmission Date: 20260117
  Serious: Yes (Disabling, Other)
  Sender: FDA-CTU
  Company Number: None

PATIENT
  Age: 63 Year
  Sex: Male
  Weight: 87.44 kg

DRUGS (1)
  1. ELIGARD [Suspect]
     Active Substance: LEUPROLIDE ACETATE
     Indication: Prostate cancer
     Dosage: OTHER FREQUENCY : EVERY MONTH;?
     Route: 058
     Dates: start: 20250709, end: 20250709

REACTIONS (4)
  - Neuropathy peripheral [None]
  - Injection site hypersensitivity [None]
  - Back pain [None]
  - Hypoaesthesia [None]

NARRATIVE: CASE EVENT DATE: 20250709
